FAERS Safety Report 6011129-9 (Version None)
Quarter: 2008Q4

REPORT INFORMATION
  Report Type: 
  Country: None (occurrence: None)
  Receive Date: 20081217
  Receipt Date: 20081217
  Transmission Date: 20090506
  Serious: Yes (Hospitalization)
  Sender: FDA-Public Use
  Company Number: None

PATIENT
  Age: 58 Year
  Sex: Male
  Weight: 84.8226 kg

DRUGS (4)
  1. ALIMTA [Suspect]
     Indication: SQUAMOUS CELL CARCINOMA
     Dosage: 804 MG IV
     Route: 042
     Dates: start: 20081020, end: 20081201
  2. OXALIPLATIN [Suspect]
     Indication: SQUAMOUS CELL CARCINOMA
     Dosage: 110 MG IV
     Route: 042
     Dates: start: 20081020, end: 20081201
  3. AVALIDE [Concomitant]
  4. AMDIAN [Concomitant]

REACTIONS (2)
  - DEEP VEIN THROMBOSIS [None]
  - PULMONARY EMBOLISM [None]
